FAERS Safety Report 9908421 (Version 1)
Quarter: 2014Q1

REPORT INFORMATION
  Report Type: Spontaneous
  Country: US (occurrence: None)
  Receive Date: 20140212
  Receipt Date: 20140212
  Transmission Date: 20141002
  Serious: Yes (Hospitalization)
  Sender: FDA-Public Use
  Company Number: None

PATIENT
  Age: 66 Year
  Sex: Male
  Weight: 100 kg

DRUGS (2)
  1. CARVEDILOL [Suspect]
     Indication: ATRIAL FIBRILLATION
     Route: 048
     Dates: start: 20110617
  2. DILTIAZEM [Suspect]
     Route: 048
     Dates: start: 20130524

REACTIONS (4)
  - Atrial flutter [None]
  - Chest pain [None]
  - Dyspnoea [None]
  - Hyperhidrosis [None]
